FAERS Safety Report 16358616 (Version 1)
Quarter: 2019Q2

REPORT INFORMATION
  Report Type: Spontaneous
  Country: US (occurrence: US)
  Receive Date: 20190419
  Receipt Date: 20190419
  Transmission Date: 20190711
  Serious: No
  Sender: FDA-Public Use
  Company Number: None

PATIENT
  Age: 81 Year
  Sex: Female

DRUGS (4)
  1. NUCALA [Suspect]
     Active Substance: MEPOLIZUMAB
     Dates: start: 201811
  2. ATORVASTATIN [Concomitant]
     Active Substance: ATORVASTATIN
  3. LIVALO [Concomitant]
     Active Substance: PITAVASTATIN CALCIUM
  4. FLUCONAZOLE. [Concomitant]
     Active Substance: FLUCONAZOLE

REACTIONS (2)
  - Drug interaction [None]
  - Bone pain [None]

NARRATIVE: CASE EVENT DATE: 20181121
